FAERS Safety Report 25187297 (Version 1)
Quarter: 2025Q2

REPORT INFORMATION
  Report Type: Spontaneous
  Country: US (occurrence: US)
  Receive Date: 20250411
  Receipt Date: 20250411
  Transmission Date: 20250717
  Serious: Yes (Hospitalization, Other)
  Sender: EXELA PHARMA SCIENCES
  Company Number: US-EXELAPHARMA-2025EXLA00039

PATIENT
  Age: 86 Year
  Sex: Female

DRUGS (1)
  1. GLYRX-PF [Suspect]
     Active Substance: GLYCOPYRROLATE
     Indication: Sinus bradycardia

REACTIONS (6)
  - Sinus tachycardia [Recovered/Resolved]
  - Electrocardiogram ST segment elevation [Recovered/Resolved]
  - Ventricular dysfunction [Recovered/Resolved]
  - Stress cardiomyopathy [Recovered/Resolved]
  - Cardiac failure acute [Recovered/Resolved]
  - Ventricular tachycardia [Recovered/Resolved]
